FAERS Safety Report 8317167-5 (Version None)
Quarter: 2012Q2

REPORT INFORMATION
  Report Type: 
  Country: None (occurrence: None)
  Receive Date: 20120427
  Receipt Date: 20120419
  Transmission Date: 20120825
  Serious: Yes (Hospitalization)
  Sender: FDA-Public Use
  Company Number: US-BAYER-2011-123173

PATIENT
  Age: 28 Year
  Sex: Female
  Weight: 63.492 kg

DRUGS (4)
  1. AMOXICILLIN [Concomitant]
     Dosage: 500 MG, TID
     Route: 048
  2. VICODIN [Concomitant]
     Indication: PAIN
     Dosage: 5-500MG/1 EVERY 6 HOURS AS NEEDED
     Route: 048
  3. FLUCONAZOLE [Concomitant]
     Dosage: 150 MG, SINGLE DOSE
     Route: 048
  4. YASMIN [Suspect]
     Indication: CONTRACEPTION
     Dosage: UNK
     Dates: start: 20090716, end: 20100105

REACTIONS (3)
  - ABDOMINAL PAIN UPPER [None]
  - MENTAL DISORDER [None]
  - CHOLELITHIASIS [None]
